FAERS Safety Report 13341750 (Version 2)
Quarter: 2018Q2

REPORT INFORMATION
  Report Type: Spontaneous
  Country: US (occurrence: US)
  Receive Date: 20170316
  Receipt Date: 20180403
  Transmission Date: 20180711
  Serious: No
  Sender: FDA-Public Use
  Company Number: US-ROCHE-1874104

PATIENT
  Sex: Female

DRUGS (14)
  1. WARFARIN SODIUM. [Concomitant]
     Active Substance: WARFARIN SODIUM
  2. ADVAIR HFA [Concomitant]
     Active Substance: FLUTICASONE PROPIONATE\SALMETEROL XINAFOATE
  3. AZITHROMYCIN ANHYDROUS. [Concomitant]
     Active Substance: AZITHROMYCIN ANHYDROUS
  4. PRAVASTATIN. [Concomitant]
     Active Substance: PRAVASTATIN
  5. ZETIA [Concomitant]
     Active Substance: EZETIMIBE
  6. PERPHENAZINE/AMITRIPTYLINE [Concomitant]
     Active Substance: AMITRIPTYLINE\PERPHENAZINE
  7. FLAXSEED [Concomitant]
     Active Substance: FLAX SEED
  8. KEFLEX [Concomitant]
     Active Substance: CEPHALEXIN
  9. DILTIAZEM. [Concomitant]
     Active Substance: DILTIAZEM
  10. LOSARTAN. [Concomitant]
     Active Substance: LOSARTAN
  11. VENTOLIN [Concomitant]
     Active Substance: ALBUTEROL SULFATE
  12. ERIVEDGE [Suspect]
     Active Substance: VISMODEGIB
     Indication: BASAL CELL CARCINOMA
     Route: 048
     Dates: start: 20161207
  13. ASPIRIN. [Concomitant]
     Active Substance: ASPIRIN
  14. COENZYME Q10 COMPLEX (UNK INGREDIENTS) [Concomitant]

REACTIONS (4)
  - Dysgeusia [Unknown]
  - Ageusia [Unknown]
  - Bronchitis [Unknown]
  - Nausea [Unknown]
